FAERS Safety Report 9469598 (Version 2)
Quarter: 2013Q3

REPORT INFORMATION
  Report Type: Report from Study
  Country: CZ (occurrence: CZ)
  Receive Date: 20130822
  Receipt Date: 20130822
  Transmission Date: 20140515
  Serious: Yes (Other)
  Sender: FDA-Public Use
  Company Number: CZ-BRISTOL-MYERS SQUIBB COMPANY-16709859

PATIENT
  Age: 71 Year
  Sex: Female

DRUGS (1)
  1. APIXABAN [Suspect]
     Indication: THROMBOSIS PROPHYLAXIS
     Dosage: APIXABAN 5 MG
     Route: 048
     Dates: start: 20090709, end: 20120417

REACTIONS (2)
  - Metrorrhagia [Recovered/Resolved]
  - Uterine leiomyosarcoma [Recovered/Resolved]
